FAERS Safety Report 9689276 (Version 4)
Quarter: 2014Q2

REPORT INFORMATION
  Report Type: Spontaneous
  Country: NZ (occurrence: NZ)
  Receive Date: 20131114
  Receipt Date: 20140516
  Transmission Date: 20141212
  Serious: Yes (Hospitalization, Other)
  Sender: FDA-Public Use
  Company Number: NZ-ABBVIE-13P-118-1166498-00

PATIENT
  Age: 32 Year
  Sex: Female

DRUGS (6)
  1. HUMIRA [Suspect]
     Indication: PSORIATIC ARTHROPATHY
     Route: 058
     Dates: start: 201208
  2. NORIMIN [Suspect]
     Indication: CONTRACEPTION
  3. METHOTREXATE [Concomitant]
     Indication: PSORIATIC ARTHROPATHY
     Dates: start: 201109
  4. FOLIC ACID [Concomitant]
     Indication: DRUG THERAPY
     Dates: start: 201109
  5. FLUOXETINE [Concomitant]
     Indication: PRODUCT USED FOR UNKNOWN INDICATION
  6. VOLTAREN SR [Concomitant]
     Indication: PSORIATIC ARTHROPATHY
     Dosage: TWICE DAILY OR AS REQUIRED
     Route: 048
     Dates: start: 201109

REACTIONS (4)
  - Pulmonary embolism [Recovered/Resolved]
  - Chest pain [Not Recovered/Not Resolved]
  - Dyspnoea [Recovering/Resolving]
  - Immunodeficiency [Unknown]
